FAERS Safety Report 9951926 (Version 1)
Quarter: 2014Q1

REPORT INFORMATION
  Report Type: Report from Study
  Country: US (occurrence: US)
  Receive Date: 20140304
  Receipt Date: 20140304
  Transmission Date: 20141002
  Serious: No
  Sender: FDA-Public Use
  Company Number: US-ABBVIE-13P-163-1077775-00

PATIENT
  Age: 51 Year
  Sex: Male

DRUGS (21)
  1. HUMIRA [Suspect]
     Indication: CROHN^S DISEASE
     Dates: start: 20130206, end: 20130206
  2. HUMIRA [Suspect]
     Dates: start: 20130220, end: 20130220
  3. HUMIRA [Suspect]
  4. SPIRIVA [Concomitant]
     Indication: CHRONIC OBSTRUCTIVE PULMONARY DISEASE
     Dosage: INHALER DAILY
  5. SPIRIVA [Concomitant]
     Indication: ASTHMA
  6. SYMBICORT [Concomitant]
     Indication: CHRONIC OBSTRUCTIVE PULMONARY DISEASE
     Dosage: INHALER
  7. SYMBICORT [Concomitant]
     Indication: ASTHMA
  8. ALBUTEROL [Concomitant]
     Indication: CHRONIC OBSTRUCTIVE PULMONARY DISEASE
     Dosage: 3-4/DAY, NEBULIZER
  9. ALBUTEROL [Concomitant]
     Indication: ASTHMA
  10. OXYCODONE [Concomitant]
     Indication: PAIN
     Dosage: EVERY SIX HOURS
  11. DIAZEPAM [Concomitant]
     Indication: MUSCLE SPASMS
  12. FLEXERIL [Concomitant]
     Indication: MUSCLE SPASMS
  13. IMURAN [Concomitant]
     Indication: GASTRIC DISORDER
     Dosage: DAILY
  14. CALCIUM SUPPLEMENTS [Concomitant]
     Indication: PRODUCT USED FOR UNKNOWN INDICATION
  15. B-12 [Concomitant]
     Indication: PRODUCT USED FOR UNKNOWN INDICATION
     Dosage: EVERY MONTH
  16. B-12 VITAMINS [Concomitant]
     Indication: PRODUCT USED FOR UNKNOWN INDICATION
     Dosage: DAILY
  17. VITAMIN C [Concomitant]
     Indication: PRODUCT USED FOR UNKNOWN INDICATION
  18. LYRICA [Concomitant]
     Indication: PRODUCT USED FOR UNKNOWN INDICATION
  19. CYMBALTA [Concomitant]
     Indication: PRODUCT USED FOR UNKNOWN INDICATION
  20. ZOLOFT [Concomitant]
     Indication: PRODUCT USED FOR UNKNOWN INDICATION
  21. TYLENOL [Concomitant]
     Indication: PAIN

REACTIONS (2)
  - Gastric dilatation [Recovering/Resolving]
  - Headache [Unknown]
